FAERS Safety Report 6377166-X (Version None)
Quarter: 2009Q3

REPORT INFORMATION
  Report Type: 
  Country: None (occurrence: None)
  Receive Date: 20090925
  Receipt Date: 20090920
  Transmission Date: 20100115
  Serious: Yes (Death)
  Sender: FDA-Public Use
  Company Number: IT-ELI_LILLY_AND_COMPANY-IT200909004589

PATIENT
  Age: 46 Year
  Sex: Female

DRUGS (1)
  1. XIGRIS [Suspect]
     Dosage: UNK, UNKNOWN
     Route: 065
     Dates: start: 20090914

REACTIONS (3)
  - CARDIAC ARREST [None]
  - CIRCULATORY COLLAPSE [None]
  - RESPIRATORY FAILURE [None]
